FAERS Safety Report 13296892 (Version 2)
Quarter: 2017Q3

REPORT INFORMATION
  Report Type: Spontaneous
  Country: DK (occurrence: DK)
  Receive Date: 20170306
  Receipt Date: 20170719
  Transmission Date: 20171127
  Serious: Yes (Hospitalization)
  Sender: FDA-Public Use
  Company Number: DK-ROCHE-1900500

PATIENT
  Age: 74 Year
  Sex: Female

DRUGS (10)
  1. LOSARSTAD [Concomitant]
     Indication: PRODUCT USED FOR UNKNOWN INDICATION
     Route: 065
  2. HEXASOPTIN [Concomitant]
     Indication: PRODUCT USED FOR UNKNOWN INDICATION
     Route: 048
  3. VERAPAMIL [Concomitant]
     Active Substance: VERAPAMIL HYDROCHLORIDE
     Indication: HYPERTENSION
     Route: 065
     Dates: start: 20160111
  4. HYDROCHLOROTHIAZIDE/LOSARTAN POTASSIUM [Concomitant]
     Active Substance: HYDROCHLOROTHIAZIDE\LOSARTAN POTASSIUM
     Indication: HYPERTENSION
     Route: 065
     Dates: start: 20160502
  5. XELODA [Suspect]
     Active Substance: CAPECITABINE
     Indication: ADENOCARCINOMA OF COLON
     Dosage: STRENGTH: 500 MG AND 150 MG
     Route: 048
     Dates: start: 20170217, end: 20170221
  6. JERN C [Concomitant]
     Indication: MINERAL SUPPLEMENTATION
     Route: 048
  7. PAMOL [Concomitant]
     Active Substance: ACETAMINOPHEN
     Indication: PRODUCT USED FOR UNKNOWN INDICATION
     Route: 048
  8. MOTILIUM [Concomitant]
     Active Substance: DOMPERIDONE
     Indication: PRODUCT USED FOR UNKNOWN INDICATION
     Dosage: STYRKE: 10 MG.
     Route: 048
  9. MAGNESIA ^DAK^ [Concomitant]
     Indication: CONSTIPATION
     Route: 065
     Dates: start: 20170126
  10. SIMVASTATIN. [Concomitant]
     Active Substance: SIMVASTATIN
     Indication: HYPERCHOLESTEROLAEMIA
     Route: 065
     Dates: start: 20131128

REACTIONS (14)
  - Blood alkaline phosphatase increased [Unknown]
  - Nausea [Unknown]
  - Dyspnoea [Unknown]
  - Cardiotoxicity [Not Recovered/Not Resolved]
  - Aspartate aminotransferase increased [Unknown]
  - Fatigue [Unknown]
  - Gastrointestinal pain [Unknown]
  - Hepatotoxicity [Not Recovered/Not Resolved]
  - Chest pain [Unknown]
  - Malaise [Unknown]
  - Thrombocytopenia [Not Recovered/Not Resolved]
  - Malaise [Unknown]
  - Syncope [Unknown]
  - Cardiac murmur [Unknown]

NARRATIVE: CASE EVENT DATE: 20170220
